FAERS Safety Report 18625052 (Version 1)
Quarter: 2020Q4

REPORT INFORMATION
  Report Type: Other
  Country: JP (occurrence: JP)
  Receive Date: 20201217
  Receipt Date: 20201217
  Transmission Date: 20210114
  Serious: Yes (Death)
  Sender: FDA-Public Use
  Company Number: JP-ROCHE-2732820

PATIENT
  Age: 8 Decade
  Sex: Female

DRUGS (3)
  1. XELODA [Suspect]
     Active Substance: CAPECITABINE
     Indication: NEUROENDOCRINE TUMOUR
     Route: 048
  2. AVASTIN [Suspect]
     Active Substance: BEVACIZUMAB
     Indication: NEUROENDOCRINE TUMOUR
     Route: 041
  3. OXALIPLATIN. [Concomitant]
     Active Substance: OXALIPLATIN
     Indication: NEUROENDOCRINE TUMOUR
     Route: 041

REACTIONS (5)
  - Intentional product use issue [Unknown]
  - Decreased appetite [Unknown]
  - Diarrhoea [Unknown]
  - Disease progression [Fatal]
  - Off label use [Unknown]
